FAERS Safety Report 18955218 (Version 1)
Quarter: 2021Q1

REPORT INFORMATION
  Report Type: Spontaneous
  Country: US (occurrence: US)
  Receive Date: 20210302
  Receipt Date: 20210302
  Transmission Date: 20210420
  Serious: No
  Sender: FDA-Public Use
  Company Number: US-AMGEN-USASP2021029545

PATIENT
  Age: 62 Year
  Sex: Male
  Weight: 79.9 kg

DRUGS (1)
  1. NPLATE [Suspect]
     Active Substance: ROMIPLOSTIM
     Indication: IMMUNE THROMBOCYTOPENIA
     Dosage: 170 MICROGRAM, QWK
     Route: 058

REACTIONS (1)
  - Drug ineffective [Unknown]
